FAERS Safety Report 9478987 (Version 2)
Quarter: 2016Q1

REPORT INFORMATION
  Report Type: Report from Study
  Country: US (occurrence: US)
  Receive Date: 20130827
  Receipt Date: 20160309
  Transmission Date: 20160526
  Serious: Yes (Other)
  Sender: FDA-Public Use
  Company Number: US-ROCHE-1266169

PATIENT
  Age: 70 Year
  Sex: Female

DRUGS (14)
  1. PREDNISONE. [Concomitant]
     Active Substance: PREDNISONE
     Route: 048
  2. SYMBICORT [Concomitant]
     Active Substance: BUDESONIDE\FORMOTEROL FUMARATE DIHYDRATE
     Dosage: INHALE 2 PUFFS BID
     Route: 055
  3. DALIRESP [Concomitant]
     Active Substance: ROFLUMILAST
     Route: 048
  4. XYZAL [Concomitant]
     Active Substance: LEVOCETIRIZINE DIHYDROCHLORIDE
     Route: 048
  5. SINGULAIR [Concomitant]
     Active Substance: MONTELUKAST SODIUM
     Route: 048
  6. ASPIRIN. [Concomitant]
     Active Substance: ASPIRIN
     Route: 048
  7. PROVENTIL [Concomitant]
     Active Substance: ALBUTEROL
     Indication: ASTHMA
     Dosage: INHALE 2 PUFFS EVERY 4 HOURS AS NEEDED FOR ASTHMA
     Route: 055
  8. ARIMIDEX [Concomitant]
     Active Substance: ANASTROZOLE
     Route: 048
  9. NASONEX [Concomitant]
     Active Substance: MOMETASONE FUROATE
     Dosage: 2 SPRAYS IN EACH NOSTRIL QD
     Route: 045
  10. ALBUTEROL. [Concomitant]
     Active Substance: ALBUTEROL
     Dosage: INHALE NEBULIZER SOLUTION VIA NEBULIZER 1-2 X DAY
     Route: 055
  11. WARFARIN [Concomitant]
     Active Substance: WARFARIN
     Dosage: 10 MG ORALLY AS DIRECTED
     Route: 048
  12. NEXIUM [Concomitant]
     Active Substance: ESOMEPRAZOLE MAGNESIUM
     Route: 048
  13. XOLAIR [Suspect]
     Active Substance: OMALIZUMAB
     Indication: PRODUCT USED FOR UNKNOWN INDICATION
     Route: 058
  14. LISINOPRIL/HCTZ [Concomitant]
     Active Substance: HYDROCHLOROTHIAZIDE\LISINOPRIL
     Dosage: 20/12.5 MG 1/2 TIMES A DAY
     Route: 048

REACTIONS (8)
  - Asthma [Unknown]
  - Face oedema [Unknown]
  - Venous thrombosis [Unknown]
  - Pulmonary function test abnormal [Unknown]
  - Peripheral swelling [Unknown]
  - Allergic sinusitis [Unknown]
  - Jugular vein distension [Unknown]
  - Dyspnoea [Unknown]

NARRATIVE: CASE EVENT DATE: 20121206
